FAERS Safety Report 7545300-1 (Version None)
Quarter: 2011Q2

REPORT INFORMATION
  Report Type: 
  Country: None (occurrence: None)
  Receive Date: 20110613
  Receipt Date: 20110613
  Transmission Date: 20111010
  Serious: Yes (Other)
  Sender: FDA-Public Use
  Company Number: None

PATIENT
  Age: 41 Year
  Sex: Female
  Weight: 56.6996 kg

DRUGS (1)
  1. AZELASTINE HCL [Suspect]
     Indication: NASAL CONGESTION
     Dosage: 2 SPRAYS TWICE DAILY NASAL
     Route: 045

REACTIONS (2)
  - THROAT TIGHTNESS [None]
  - PHARYNGEAL HYPOAESTHESIA [None]
